FAERS Safety Report 19135232 (Version 2)
Quarter: 2021Q2

REPORT INFORMATION
  Report Type: Report from Study
  Country: KR (occurrence: KR)
  Receive Date: 20210414
  Receipt Date: 20210426
  Transmission Date: 20210717
  Serious: Yes (Death)
  Sender: FDA-Public Use
  Company Number: KR-ROCHE-2809833

PATIENT
  Age: 46 Year
  Sex: Female
  Weight: 49 kg

DRUGS (25)
  1. CABOZANTINIB [Suspect]
     Active Substance: CABOZANTINIB
     Indication: NON-SMALL CELL LUNG CANCER METASTATIC
     Dosage: DATE OF MOST RECENT DOSE OF STUDY DRUG PRIOR TO SERIOUS ADVERSE EVENT 08?APR?2021 20 MG
     Route: 048
     Dates: start: 20210125
  2. FOTAGEL [Concomitant]
     Indication: DIARRHOEA
     Route: 048
     Dates: start: 20210309, end: 20210329
  3. SEPTRIN [Concomitant]
     Active Substance: SULFAMETHOXAZOLE\TRIMETHOPRIM
     Indication: PROPHYLAXIS
     Dosage: 3 TABLET
     Route: 048
     Dates: start: 20210330
  4. CRAVIT [Concomitant]
     Active Substance: LEVOFLOXACIN
     Indication: PROPHYLAXIS
     Route: 048
     Dates: start: 20210330
  5. DURICEF [Concomitant]
     Active Substance: CEFADROXIL
     Indication: PROPHYLAXIS
     Route: 048
     Dates: start: 20210330
  6. GODEX (SOUTH KOREA) [Concomitant]
     Indication: ALANINE AMINOTRANSFERASE INCREASED
     Dosage: 1 CAPSULE
     Route: 048
     Dates: start: 20210330
  7. SEPTRIN [Concomitant]
     Active Substance: SULFAMETHOXAZOLE\TRIMETHOPRIM
     Indication: PROPHYLAXIS
     Dosage: 2 TABLET
     Route: 048
     Dates: start: 20210406
  8. EPINEPHRINE. [Concomitant]
     Active Substance: EPINEPHRINE
     Route: 042
     Dates: start: 20210409, end: 20210409
  9. LOPERAMIDE [Concomitant]
     Active Substance: LOPERAMIDE
     Indication: DIARRHOEA
     Route: 048
     Dates: start: 20210309, end: 20210329
  10. SOLONDO [Concomitant]
     Active Substance: PREDNISOLONE
     Indication: PROPHYLAXIS
     Route: 048
     Dates: start: 20210330
  11. LAMINA?G [Concomitant]
     Indication: PROPHYLAXIS
     Route: 048
     Dates: start: 20210330
  12. TYLENOL ER [Concomitant]
     Active Substance: ACETAMINOPHEN
     Indication: PROPHYLAXIS
     Route: 048
     Dates: start: 20210330
  13. KEROMIN [Concomitant]
     Indication: PROPHYLAXIS
     Route: 042
     Dates: start: 20210409, end: 20210409
  14. PULMICORT RESPULES [Concomitant]
     Active Substance: BUDESONIDE
     Dosage: 1 INHALATION
     Route: 055
     Dates: start: 20210409, end: 20210409
  15. SUCCICHOLINE [Concomitant]
     Indication: PROPHYLAXIS
     Route: 042
     Dates: start: 20210409, end: 20210409
  16. CRAVIT [Concomitant]
     Active Substance: LEVOFLOXACIN
     Route: 042
     Dates: start: 20210409, end: 20210409
  17. PYRIDOXINE [Concomitant]
     Active Substance: PYRIDOXINE
     Route: 048
     Dates: start: 20210216
  18. ATEZOLIZUMAB. [Suspect]
     Active Substance: ATEZOLIZUMAB
     Indication: NON-SMALL CELL LUNG CANCER METASTATIC
     Dosage: DATE OF MOST RECENT DOSE OF STUDY DRUG PRIOR TO ADVERSE EVENT 09?MAR?2021 1200 MG
     Route: 041
     Dates: start: 20210125
  19. MAGNESIUM OXIDE. [Concomitant]
     Active Substance: MAGNESIUM OXIDE
     Indication: CONSTIPATION
     Dosage: 1 TABLET
     Route: 048
     Dates: start: 20210406
  20. URSA [Concomitant]
     Active Substance: URSODIOL
     Indication: ALANINE AMINOTRANSFERASE INCREASED
     Route: 048
     Dates: start: 20210330
  21. MUCOMYST [Concomitant]
     Active Substance: ACETYLCYSTEINE
     Route: 055
     Dates: start: 20210409, end: 20210409
  22. TIROPA [Concomitant]
     Active Substance: TIROPRAMIDE
     Indication: ABDOMINAL PAIN
     Route: 048
     Dates: start: 20210309, end: 20210329
  23. LANSTON [Concomitant]
     Active Substance: LANSOPRAZOLE
     Indication: PROPHYLAXIS
     Route: 048
     Dates: start: 20210330
  24. GODEX (SOUTH KOREA) [Concomitant]
     Indication: ASPARTATE AMINOTRANSFERASE INCREASED
  25. URSA [Concomitant]
     Active Substance: URSODIOL
     Indication: ASPARTATE AMINOTRANSFERASE INCREASED

REACTIONS (2)
  - Pneumonitis [Fatal]
  - Drug-induced liver injury [Unknown]

NARRATIVE: CASE EVENT DATE: 20210408
